FAERS Safety Report 9099998 (Version 2)
Quarter: 2013Q1

REPORT INFORMATION
  Report Type: Spontaneous
  Country: US (occurrence: US)
  Receive Date: 20130214
  Receipt Date: 20130306
  Transmission Date: 20140127
  Serious: Yes (Death)
  Sender: FDA-Public Use
  Company Number: US-GILEAD-2013-0069695

PATIENT
  Sex: Female

DRUGS (27)
  1. LETAIRIS [Suspect]
     Indication: PULMONARY HYPERTENSION
     Dosage: 5 MG, QD
     Dates: start: 20120611
  2. LETAIRIS [Suspect]
     Dosage: UNK
  3. OXYGEN [Concomitant]
  4. REVATIO [Concomitant]
  5. TYVASO [Concomitant]
  6. REMODULIN [Concomitant]
  7. AFRIN                              /00070001/ [Concomitant]
  8. AMITRIPTYLINE [Concomitant]
  9. AMLODIPINE [Concomitant]
  10. ASPIRIN [Concomitant]
  11. ATORVASTATIN CALCIUM [Concomitant]
  12. CLOPIDOGREL BISULFATE [Concomitant]
  13. FLUTICASONE PROPIONATE [Concomitant]
  14. GLIMEPIRIDE [Concomitant]
  15. LASIX                              /00032601/ [Concomitant]
  16. LIPITOR [Concomitant]
  17. LUNESTA [Concomitant]
  18. METFORMIN [Concomitant]
  19. METOPROLOL [Concomitant]
  20. POTASSIUM CHLORIDE [Concomitant]
  21. SENOKOT                            /00142201/ [Concomitant]
  22. SPIRONOLACTONE [Concomitant]
  23. VYTORIN [Concomitant]
  24. XANAX [Concomitant]
  25. ZYVOX [Concomitant]
  26. ZOSYN [Concomitant]
  27. AVELOX [Concomitant]

REACTIONS (4)
  - Respiratory failure [Fatal]
  - Bronchitis [Fatal]
  - Pneumonia [Fatal]
  - Sepsis [Fatal]
